FAERS Safety Report 13138861 (Version 3)
Quarter: 2017Q1

REPORT INFORMATION
  Report Type: Spontaneous
  Country: US (occurrence: US)
  Receive Date: 20170123
  Receipt Date: 20170327
  Transmission Date: 20170428
  Serious: No
  Sender: FDA-Public Use
  Company Number: US-PFIZER INC-2017026937

PATIENT
  Age: 57 Year
  Sex: Female

DRUGS (3)
  1. IBRANCE [Suspect]
     Active Substance: PALBOCICLIB
     Dosage: 125 MG, UNK
  2. IBRANCE [Suspect]
     Active Substance: PALBOCICLIB
     Dosage: 100 MG, CYCLIC (DAILY DAY 1 THROUGH DAY 21 PER 28 DAY CYCLE
     Route: 048
     Dates: start: 201701
  3. FASLODEX [Suspect]
     Active Substance: FULVESTRANT
     Dosage: UNK

REACTIONS (9)
  - Full blood count decreased [Unknown]
  - Fatigue [Unknown]
  - Rash macular [Recovered/Resolved]
  - Glossodynia [Unknown]
  - Neoplasm progression [Unknown]
  - Stomatitis [Unknown]
  - Pruritus [Unknown]
  - Oral pain [Recovered/Resolved]
  - Drug dose omission [Unknown]
